FAERS Safety Report 11277174 (Version 1)
Quarter: 2015Q3

REPORT INFORMATION
  Report Type: Spontaneous
  Country: FR (occurrence: FR)
  Receive Date: 20150716
  Receipt Date: 20150716
  Transmission Date: 20151125
  Serious: Yes (Hospitalization)
  Sender: FDA-Public Use
  Company Number: FR-009507513-1507FRA005559

PATIENT
  Age: 26 Year
  Sex: Female

DRUGS (5)
  1. DECAPEPTYL [Suspect]
     Active Substance: TRIPTORELIN ACETATE
     Dosage: UNK
     Route: 058
     Dates: start: 20150420, end: 20150425
  2. GONAL-F [Suspect]
     Active Substance: FOLLITROPIN
     Dosage: 100 IU, QD
     Route: 058
     Dates: start: 20150416, end: 20150419
  3. GONAL-F [Suspect]
     Active Substance: FOLLITROPIN
     Dosage: 150 IU, QD
     Dates: start: 20150420, end: 20150425
  4. GONADOTROPIN, CHORIONIC [Suspect]
     Active Substance: CHORIOGONADOTROPIN ALFA
     Dosage: 5000 IU ONCE
     Route: 030
     Dates: start: 20150426, end: 20150426
  5. DECAPEPTYL [Suspect]
     Active Substance: TRIPTORELIN ACETATE
     Dosage: UNK
     Dates: start: 20150425

REACTIONS (3)
  - Malaise [None]
  - Ovarian hyperstimulation syndrome [Recovering/Resolving]
  - Peritoneal haemorrhage [Recovering/Resolving]

NARRATIVE: CASE EVENT DATE: 20150428
